FAERS Safety Report 10415444 (Version 4)
Quarter: 2014Q3

REPORT INFORMATION
  Report Type: Spontaneous
  Country: GB (occurrence: GB)
  Receive Date: 20140828
  Receipt Date: 20140926
  Transmission Date: 20150326
  Serious: Yes (Death, Other)
  Sender: FDA-Public Use
  Company Number: PHFR2014GB005892

PATIENT
  Age: 75 Year
  Sex: Male

DRUGS (6)
  1. VALPROIC ACID. [Concomitant]
     Active Substance: VALPROIC ACID
     Indication: MOOD ALTERED
     Dosage: 1500 MG, DAILY
     Route: 048
  2. ASPIRIN. [Concomitant]
     Active Substance: ASPIRIN
     Indication: PLATELET COUNT INCREASED
     Dosage: 75 MG, QD
     Route: 048
  3. CLOZARIL [Suspect]
     Active Substance: CLOZAPINE
     Indication: SCHIZOPHRENIA
     Dosage: 200 MG, DAILY
     Route: 048
     Dates: start: 20080807
  4. CLOZARIL [Suspect]
     Active Substance: CLOZAPINE
     Dosage: 100 MG, BID
     Route: 048
  5. HYOSCINE [Concomitant]
     Active Substance: SCOPOLAMINE
     Indication: SALIVARY HYPERSECRETION
     Dosage: 300 MG, DAILY
     Route: 048
  6. LANDO [Concomitant]
     Indication: CONSTIPATION
     Dosage: UKN
     Route: 048

REACTIONS (10)
  - Schizophrenia [Fatal]
  - Lower respiratory tract infection [Unknown]
  - Skin cancer [Not Recovered/Not Resolved]
  - Urinary tract infection [Unknown]
  - Atelectasis [Unknown]
  - Haemoglobin decreased [Unknown]
  - Arrhythmia [Fatal]
  - Myocardial ischaemia [Fatal]
  - Cardiac arrest [Fatal]
  - Malaise [Unknown]

NARRATIVE: CASE EVENT DATE: 20131008
